FAERS Safety Report 14674273 (Version 1)
Quarter: 2018Q1

REPORT INFORMATION
  Report Type: Spontaneous
  Country: CA (occurrence: CA)
  Receive Date: 20180323
  Receipt Date: 20180323
  Transmission Date: 20180509
  Serious: Yes (Disabling)
  Sender: FDA-Public Use
  Company Number: CA-BAYER-2018-051761

PATIENT
  Age: 45 Year
  Sex: Female
  Weight: 65.76 kg

DRUGS (1)
  1. MIRENA [Suspect]
     Active Substance: LEVONORGESTREL
     Indication: DYSMENORRHOEA
     Dosage: 20 MCG/24HR, CONT
     Route: 015

REACTIONS (19)
  - Depression [Unknown]
  - Dizziness [Unknown]
  - Loss of libido [Unknown]
  - Exercise lack of [Unknown]
  - Disturbance in attention [Unknown]
  - Migraine [Unknown]
  - Insomnia [Unknown]
  - Mood swings [Unknown]
  - Muscle spasms [Unknown]
  - Negative thoughts [Unknown]
  - Amenorrhoea [Unknown]
  - Amnesia [Unknown]
  - Fatigue [Unknown]
  - Pain [Unknown]
  - Weight increased [Unknown]
  - Impaired work ability [Unknown]
  - Photophobia [Unknown]
  - Vertigo [Unknown]
  - Visual impairment [Unknown]
